FAERS Safety Report 17408049 (Version 2)
Quarter: 2020Q2

REPORT INFORMATION
  Report Type: Spontaneous
  Country: BE (occurrence: BE)
  Receive Date: 20200212
  Receipt Date: 20200401
  Transmission Date: 20200713
  Serious: Yes (Hospitalization, Other)
  Sender: FDA-Public Use
  Company Number: NVSC2020BE037073

PATIENT
  Age: 48 Year
  Sex: Female

DRUGS (3)
  1. COSENTYX [Suspect]
     Active Substance: SECUKINUMAB
     Indication: PSORIASIS
     Dosage: 300 MG, UNKNOWN
     Route: 058
     Dates: start: 20200131
  2. MEDROL [Concomitant]
     Active Substance: METHYLPREDNISOLONE
     Indication: ERYTHRODERMIC PSORIASIS
     Dosage: UNK, PROGRESSIVELY DECREASING DOSE
     Route: 048
  3. COSENTYX [Suspect]
     Active Substance: SECUKINUMAB
     Indication: PUSTULAR PSORIASIS
     Dosage: 300 MG, UNKNOWN
     Route: 058
     Dates: start: 20200125

REACTIONS (6)
  - Arthralgia [Recovering/Resolving]
  - Bacteraemia [Unknown]
  - Bone swelling [Recovering/Resolving]
  - Pyrexia [Recovering/Resolving]
  - Mediastinitis [Recovering/Resolving]
  - Joint abscess [Recovering/Resolving]

NARRATIVE: CASE EVENT DATE: 20200202
